FAERS Safety Report 5706974-0 (Version None)
Quarter: 2008Q2

REPORT INFORMATION
  Report Type: 
  Country: None (occurrence: None)
  Receive Date: 20080416
  Receipt Date: 20080409
  Transmission Date: 20081010
  Serious: Yes (Other)
  Sender: FDA-Public Use
  Company Number: GB-RB-000751-08

PATIENT
  Age: 60 Year
  Sex: Female

DRUGS (2)
  1. BUPRENORPHINE HYDROCHLORIDE [Suspect]
     Indication: ARTHRITIS
     Dosage: DOSAGE UNKNOWN
     Route: 065
  2. FENTANYL [Suspect]
     Indication: ARTHRITIS
     Dosage: DOSAGE UNKNOWN
     Route: 062

REACTIONS (4)
  - CIRCULATORY COLLAPSE [None]
  - DIZZINESS [None]
  - DRUG WITHDRAWAL SYNDROME [None]
  - HYPERHIDROSIS [None]
